FAERS Safety Report 4407861-0 (Version None)
Quarter: 2004Q3

REPORT INFORMATION
  Report Type: 
  Country: None (occurrence: None)
  Receive Date: 20040726
  Receipt Date: 20031120
  Transmission Date: 20050211
  Serious: Yes (Hospitalization)
  Sender: FDA-Public Use
  Company Number: PHEH2003US10714

PATIENT
  Age: 57 Year
  Sex: Male

DRUGS (9)
  1. CLOZARIL [Suspect]
     Dosage: 100 MG, BID
     Route: 048
     Dates: start: 19920101, end: 20030101
  2. PLAVIX [Concomitant]
  3. TOPROL-XL [Concomitant]
  4. SEROQUEL [Concomitant]
  5. LIPITOR [Concomitant]
  6. ALTACE [Concomitant]
  7. FLOMAX [Concomitant]
  8. IMDUR [Concomitant]
  9. LISINOPRIL [Concomitant]

REACTIONS (3)
  - CARDIOMYOPATHY [None]
  - CHEST PAIN [None]
  - REFLUX OESOPHAGITIS [None]
